FAERS Safety Report 11512984 (Version 2)
Quarter: 2015Q3

REPORT INFORMATION
  Report Type: Spontaneous
  Country: US (occurrence: US)
  Receive Date: 20150903
  Receipt Date: 20150903
  Transmission Date: 20151125
  Serious: No
  Sender: FDA-Public Use
  Company Number: US-ELI_LILLY_AND_COMPANY-US201004003103

PATIENT
  Age: 48 Year
  Sex: Female

DRUGS (4)
  1. HUMALOG MIX75/25 [Suspect]
     Active Substance: INSULIN LISPRO
     Indication: DIABETES MELLITUS
     Dosage: 10 U, DAILY (1/D)
     Dates: start: 2004
  2. HUMALOG MIX75/25 [Suspect]
     Active Substance: INSULIN LISPRO
     Dosage: 5 U, OTHER
     Dates: start: 20100408
  3. HUMALOG MIX75/25 [Suspect]
     Active Substance: INSULIN LISPRO
     Dosage: 10 U, DAILY (1/D)
     Dates: start: 2004
  4. HUMALOG MIX75/25 [Suspect]
     Active Substance: INSULIN LISPRO
     Dosage: 10 U, DAILY (1/D)
     Dates: start: 2004

REACTIONS (13)
  - Erythema [Unknown]
  - Insomnia [Unknown]
  - Erythema [Recovered/Resolved]
  - Nausea [Recovered/Resolved]
  - Pruritus [Unknown]
  - Dry skin [Unknown]
  - Malaise [Recovered/Resolved]
  - Dry skin [Recovered/Resolved]
  - Dizziness [Recovered/Resolved]
  - Dizziness [Unknown]
  - Pruritus [Recovered/Resolved]
  - Nausea [Unknown]
  - Feeling abnormal [Unknown]

NARRATIVE: CASE EVENT DATE: 200911
